FAERS Safety Report 10885683 (Version 1)
Quarter: 2015Q1

REPORT INFORMATION
  Report Type: Spontaneous
  Country: US (occurrence: None)
  Receive Date: 20150227
  Receipt Date: 20150227
  Transmission Date: 20150721
  Serious: Yes (Life-Threatening)
  Sender: FDA-Public Use
  Company Number: 2015US001507

PATIENT
  Age: 85 Year
  Sex: Male

DRUGS (1)
  1. ELIGARD [Suspect]
     Active Substance: LEUPROLIDE ACETATE
     Indication: PROSTATE CANCER
     Route: 030

REACTIONS (8)
  - Vomiting [None]
  - Emotional distress [None]
  - Hypopituitarism [None]
  - Pituitary haemorrhage [None]
  - Headache [None]
  - Eye pain [None]
  - Photophobia [None]
  - Incorrect route of drug administration [None]
